FAERS Safety Report 16108582 (Version 1)
Quarter: 2019Q1

REPORT INFORMATION
  Report Type: Report from Study
  Country: None (occurrence: US)
  Receive Date: 20190323
  Receipt Date: 20190323
  Transmission Date: 20190418
  Serious: Yes (Hospitalization)
  Sender: FDA-Public Use
  Company Number: US-ABBVIE-19K-163-2710863-00

PATIENT
  Sex: Female

DRUGS (1)
  1. HUMIRA [Suspect]
     Active Substance: ADALIMUMAB
     Indication: RHEUMATOID ARTHRITIS
     Route: 058

REACTIONS (7)
  - Malnutrition [Unknown]
  - Gout [Unknown]
  - Pneumonia [Unknown]
  - Cardiac failure congestive [Unknown]
  - Dehydration [Unknown]
  - Influenza [Unknown]
  - Bronchitis [Unknown]
